FAERS Safety Report 14646416 (Version 3)
Quarter: 2018Q2

REPORT INFORMATION
  Report Type: Spontaneous
  Country: BR (occurrence: BR)
  Receive Date: 20180316
  Receipt Date: 20180510
  Transmission Date: 20180711
  Serious: Yes (Disabling, Other)
  Sender: FDA-Public Use
  Company Number: BR-009507513-1803BRA003801

PATIENT
  Sex: Male
  Weight: 72 kg

DRUGS (5)
  1. QUEROPAX [Suspect]
     Active Substance: QUETIAPINE FUMARATE
     Dosage: 1/2 TABLET PER DAY
  2. QUEROPAX [Suspect]
     Active Substance: QUETIAPINE FUMARATE
     Dosage: 1 DF, EVERY 2 DAYS
  3. JANUMET XR [Suspect]
     Active Substance: METFORMIN HYDROCHLORIDE\SITAGLIPTIN PHOSPHATE
     Indication: TYPE 2 DIABETES MELLITUS
     Dosage: 1 TABLET, QAM
     Route: 048
     Dates: start: 2012
  4. RITALIN [Concomitant]
     Active Substance: METHYLPHENIDATE HYDROCHLORIDE
     Indication: DEMENTIA ALZHEIMER^S TYPE
     Dosage: HALF TABLET AT 7AM AND HALF TABLET AT 2PM
     Route: 048
     Dates: start: 2006
  5. VITAMINS (UNSPECIFIED) [Concomitant]
     Active Substance: VITAMINS
     Indication: DECREASED APPETITE
     Dosage: 1 TABLET AT LUNCH
     Route: 048

REACTIONS (8)
  - Dysphagia [Not Recovered/Not Resolved]
  - Body height decreased [Not Recovered/Not Resolved]
  - Wrong technique in product usage process [Unknown]
  - Dementia Alzheimer^s type [Unknown]
  - Asthenia [Unknown]
  - Insomnia [Recovered/Resolved]
  - Tongue disorder [Unknown]
  - Somnolence [Unknown]
